FAERS Safety Report 6200693-2 (Version None)
Quarter: 2009Q2

REPORT INFORMATION
  Report Type: 
  Country: None (occurrence: None)
  Receive Date: 20090522
  Receipt Date: 20090513
  Transmission Date: 20091009
  Serious: Yes (Hospitalization, Disabling, Other)
  Sender: FDA-Public Use
  Company Number: US-MERCK-0712USA08205

PATIENT
  Age: 68 Year
  Sex: Female

DRUGS (1)
  1. FOSAMAX [Suspect]
     Indication: OSTEOPOROSIS
     Route: 048
     Dates: start: 20021201, end: 20040401

REACTIONS (9)
  - CEREBROVASCULAR ACCIDENT [None]
  - CONSTIPATION [None]
  - DIVERTICULUM [None]
  - GINGIVAL DISORDER [None]
  - INSOMNIA [None]
  - ORAL TORUS [None]
  - OSTEONECROSIS [None]
  - SACROILIITIS [None]
  - TRANSIENT ISCHAEMIC ATTACK [None]
